FAERS Safety Report 26083153 (Version 1)
Quarter: 2025Q4

REPORT INFORMATION
  Report Type: Spontaneous
  Country: EU (occurrence: EU)
  Receive Date: 20251124
  Receipt Date: 20251124
  Transmission Date: 20260117
  Serious: Yes (Hospitalization, Other)
  Sender: PFIZER
  Company Number: EU-AMGEN-AUTSP2025218484

PATIENT
  Age: 43 Year
  Sex: Male

DRUGS (5)
  1. FILGRASTIM [Suspect]
     Active Substance: FILGRASTIM
     Indication: Agranulocytosis
     Dosage: UNK
     Route: 065
  2. NPLATE [Suspect]
     Active Substance: ROMIPLOSTIM
     Indication: Immune thrombocytopenia
     Dosage: UNK
     Route: 065
     Dates: start: 2024, end: 20251103
  3. NPLATE [Suspect]
     Active Substance: ROMIPLOSTIM
     Indication: Colitis ulcerative
  4. STELARA [Concomitant]
     Active Substance: USTEKINUMAB
     Dosage: UNK
  5. DIPHTHERIA AND TETANUS TOXOIDS AND PERTUSSIS VACCINE [Concomitant]
     Active Substance: DIPHTHERIA AND TETANUS TOXOIDS AND PERTUSSIS VACCINE
     Dosage: UNK
     Route: 065

REACTIONS (7)
  - Rectal haemorrhage [Unknown]
  - Thrombocytopenia [Unknown]
  - Inflammatory bowel disease [Unknown]
  - Anal abscess [Unknown]
  - Pouchitis [Unknown]
  - Haemoglobin decreased [Unknown]
  - Hepatitis B core antibody positive [Unknown]

NARRATIVE: CASE EVENT DATE: 20221011
